FAERS Safety Report 23611904 (Version 5)
Quarter: 2025Q4

REPORT INFORMATION
  Report Type: Spontaneous
  Country: US (occurrence: US)
  Receive Date: 20240308
  Receipt Date: 20251119
  Transmission Date: 20260118
  Serious: Yes (Other)
  Sender: INCYTE
  Company Number: US-INCYTE CORPORATION-2024IN002337

PATIENT
  Age: 72 Year
  Weight: 63.492 kg

DRUGS (15)
  1. JAKAFI [Interacting]
     Active Substance: RUXOLITINIB
     Indication: Marrow hyperplasia
     Dosage: 10 MILLIGRAM, BID
  2. JAKAFI [Interacting]
     Active Substance: RUXOLITINIB
     Indication: Myelofibrosis
     Dosage: 10 MILLIGRAM, BID
  3. JAKAFI [Interacting]
     Active Substance: RUXOLITINIB
     Dosage: 5 MILLIGRAM, BID
  4. JAKAFI [Interacting]
     Active Substance: RUXOLITINIB
     Dosage: 5 MILLIGRAM, BID (ON MON, WED, AND FRIDAY)
  5. JAKAFI [Interacting]
     Active Substance: RUXOLITINIB
     Dosage: 15 MILLIGRAM (5MG IN THE AM + 10MG IN THE PM ON TUES, THURS, SAT + SUNDAY)
  6. PANTOPRAZOLE [Interacting]
     Active Substance: PANTOPRAZOLE
     Dosage: UNK
     Route: 065
  7. CALCIUM [Concomitant]
     Active Substance: CALCIUM
     Indication: Product used for unknown indication
     Dosage: 280 MILLIGRAM
     Route: 065
  8. COENZYME Q10 [Concomitant]
     Active Substance: DIETARY SUPPLEMENT\UBIDECARENONE
     Indication: Product used for unknown indication
     Dosage: 200 MILLIGRAM
     Route: 065
  9. GAS RELIEF [Concomitant]
     Active Substance: DIMETHICONE
     Indication: Product used for unknown indication
     Dosage: 80 MILLIGRAM
     Route: 065
  10. MAGNESIUM [Concomitant]
     Active Substance: MAGNESIUM
     Indication: Product used for unknown indication
     Dosage: 400 MILLIGRAM
     Route: 065
  11. VITAMINS NOS [Concomitant]
     Active Substance: VITAMINS
     Indication: Product used for unknown indication
     Dosage: UNK
     Route: 065
  12. ZINC [Concomitant]
     Active Substance: ZINC
     Indication: Product used for unknown indication
     Dosage: UNK
     Route: 065
  13. VITAMIN D NOS [Concomitant]
     Active Substance: CHOLECALCIFEROL\ERGOCALCIFEROL
     Indication: Product used for unknown indication
     Dosage: 50MCG(2000
     Route: 065
  14. ANTIFUNGAL [TOLNAFTATE] [Concomitant]
     Indication: Product used for unknown indication
     Dosage: 2 PERCENT
     Route: 065
  15. FLONASE ALLERGY RELIEF [Concomitant]
     Active Substance: FLUTICASONE PROPIONATE
     Indication: Product used for unknown indication
     Dosage: 500 MCG/AC
     Route: 065

REACTIONS (25)
  - Haematocrit increased [Unknown]
  - Blindness [Unknown]
  - Visual impairment [Unknown]
  - Drug interaction [Unknown]
  - Splenomegaly [Recovering/Resolving]
  - Hypophagia [Unknown]
  - Blood iron decreased [Unknown]
  - Depression [Unknown]
  - Chills [Unknown]
  - Fatigue [Unknown]
  - Hypersensitivity [Unknown]
  - Pruritus [Unknown]
  - COVID-19 [Unknown]
  - Arthralgia [Unknown]
  - Asthenia [Unknown]
  - Pain [Unknown]
  - Fungal infection [Unknown]
  - Platelet count increased [Unknown]
  - Abdominal pain upper [Unknown]
  - Sinusitis [Unknown]
  - Product dose omission issue [Unknown]
  - Product dose omission in error [Unknown]
  - Constipation [Unknown]
  - Headache [Unknown]
  - Flatulence [Unknown]
